FAERS Safety Report 8834008 (Version 2)
Quarter: 2013Q2

REPORT INFORMATION
  Report Type: Spontaneous
  Country: PL (occurrence: PL)
  Receive Date: 20121010
  Receipt Date: 20130422
  Transmission Date: 20140414
  Serious: Yes (Other)
  Sender: FDA-Public Use
  Company Number: PHHY2012PL086888

PATIENT
  Age: 28 Year
  Sex: Female

DRUGS (1)
  1. ZOLPIDEM [Suspect]
     Indication: INSOMNIA

REACTIONS (5)
  - Logorrhoea [Unknown]
  - Diplopia [Unknown]
  - Intentional drug misuse [Unknown]
  - Hallucination, visual [Unknown]
  - Agitation [Unknown]
